FAERS Safety Report 7151512-1 (Version None)
Quarter: 2010Q4

REPORT INFORMATION
  Report Type: 
  Country: None (occurrence: None)
  Receive Date: 20101210
  Receipt Date: 20101201
  Transmission Date: 20110411
  Serious: Yes (Hospitalization)
  Sender: FDA-Public Use
  Company Number: JP-ASTRAZENECA-2010SE54086

PATIENT
  Age: 27009 Day
  Sex: Female
  Weight: 36 kg

DRUGS (6)
  1. IRESSA [Suspect]
     Indication: LUNG ADENOCARCINOMA
     Route: 048
     Dates: start: 20100324, end: 20100506
  2. BIOFERMIN [Concomitant]
     Indication: DIARRHOEA
     Route: 048
     Dates: start: 20100409
  3. AZUNOL [Concomitant]
     Indication: STOMATITIS
     Route: 048
     Dates: start: 20100421
  4. NORVASC [Concomitant]
     Indication: HYPERTENSION
     Route: 048
  5. URSO 250 [Concomitant]
     Indication: HEPATITIS C
     Route: 048
  6. LENDORMIN [Concomitant]
     Indication: INSOMNIA
     Route: 048

REACTIONS (4)
  - DIARRHOEA [None]
  - LUNG DISORDER [None]
  - RASH [None]
  - STOMATITIS [None]
